FAERS Safety Report 17050156 (Version 1)
Quarter: 2019Q4

REPORT INFORMATION
  Report Type: Spontaneous
  Country: US (occurrence: US)
  Receive Date: 20191119
  Receipt Date: 20191119
  Transmission Date: 20200122
  Serious: No
  Sender: FDA-Public Use
  Company Number: US-TEVA-2019-US-1136567

PATIENT
  Sex: Female

DRUGS (2)
  1. KETOCONAZOLE SHAMPOO (BODY SHAMPOO) [Concomitant]
     Indication: TINEA VERSICOLOUR
     Dates: start: 20190912, end: 20190918
  2. KETOCONAZOLE. [Suspect]
     Active Substance: KETOCONAZOLE
     Indication: TINEA VERSICOLOUR
     Route: 065
     Dates: start: 20190912, end: 20190918

REACTIONS (3)
  - Erythema [Recovered/Resolved]
  - Muscle tightness [Recovered/Resolved]
  - Urticaria [Recovered/Resolved]
